FAERS Safety Report 11510506 (Version 1)
Quarter: 2015Q3

REPORT INFORMATION
  Report Type: Spontaneous
  Country: US (occurrence: US)
  Receive Date: 20150915
  Receipt Date: 20150915
  Transmission Date: 20151125
  Serious: No
  Sender: FDA-Public Use
  Company Number: US-JNJFOC-20150715827

PATIENT
  Age: 28 Month
  Sex: Female
  Weight: 13.61 kg

DRUGS (2)
  1. CHILDRENS MOTRIN [Concomitant]
     Active Substance: IBUPROFEN
     Indication: PYREXIA
     Route: 065
  2. INFANTS TYLENOL [Suspect]
     Active Substance: ACETAMINOPHEN
     Indication: PYREXIA
     Dosage: SINCE 6 DAYS
     Route: 048

REACTIONS (1)
  - Incorrect dose administered [Unknown]
